FAERS Safety Report 6130515-X (Version None)
Quarter: 2009Q1

REPORT INFORMATION
  Report Type: 
  Country: None (occurrence: None)
  Receive Date: 20090324
  Receipt Date: 20090316
  Transmission Date: 20090719
  Serious: Yes (Hospitalization)
  Sender: FDA-Public Use
  Company Number: NO-ABBOTT-09P-122-0562791-00

PATIENT
  Sex: Male

DRUGS (4)
  1. KALETRA [Suspect]
     Indication: HIV INFECTION
     Route: 048
     Dates: start: 20001001, end: 20080301
  2. CIPRALEX FILM-COATED TABLETS [Interacting]
     Indication: DRUG USE FOR UNKNOWN INDICATION
     Dates: start: 20080501
  3. EPIVIR [Suspect]
     Indication: DRUG USE FOR UNKNOWN INDICATION
     Dates: start: 20001001, end: 20080501
  4. VIDEX [Suspect]
     Indication: DRUG USE FOR UNKNOWN INDICATION
     Dates: start: 20040101, end: 20080501

REACTIONS (3)
  - DRUG INTERACTION [None]
  - LIPOATROPHY [None]
  - LIPODYSTROPHY ACQUIRED [None]
